FAERS Safety Report 5583664-9 (Version None)
Quarter: 2008Q1

REPORT INFORMATION
  Report Type: 
  Country: None (occurrence: None)
  Receive Date: 20080102
  Receipt Date: 20071220
  Transmission Date: 20080703
  Serious: Yes (Death, Hospitalization)
  Sender: FDA-Public Use
  Company Number: WAES 0712USA08530

PATIENT

DRUGS (3)
  1. COZAAR [Suspect]
  2. DIGOXIN [Concomitant]
  3. FUROSEMIDE [Concomitant]

REACTIONS (2)
  - BRADYARRHYTHMIA [None]
  - HYPOTENSION [None]
